FAERS Safety Report 9853180 (Version 1)
Quarter: 2014Q1

REPORT INFORMATION
  Report Type: Spontaneous
  Country: US (occurrence: US)
  Receive Date: 20140129
  Receipt Date: 20140129
  Transmission Date: 20141002
  Serious: Yes (Other)
  Sender: FDA-Public Use
  Company Number: PHHY2014US007957

PATIENT
  Age: 66 Year
  Sex: Male

DRUGS (6)
  1. MYFORTIC [Suspect]
     Dosage: 180 MG, BID
  2. PREDNISONE [Suspect]
     Dosage: 20 MG, DAILY
  3. PROGRAF [Suspect]
     Dosage: 1.5 MG, DAILY
  4. POSACONAZOLE [Concomitant]
     Dosage: 20 MG, DAILY
  5. BRIMONIDINE [Concomitant]
     Dosage: 0.15 %, TID
  6. PRED FORTE [Concomitant]
     Dosage: 1 %, Q2H

REACTIONS (16)
  - Retinal haemorrhage [Recovering/Resolving]
  - Chorioretinal scar [Unknown]
  - Retinal tear [Unknown]
  - Retinal detachment [Unknown]
  - Eye infection bacterial [Unknown]
  - Nocardiosis [Unknown]
  - Endophthalmitis [Unknown]
  - Visual acuity reduced [Recovering/Resolving]
  - Vitreous floaters [Unknown]
  - Eye pain [Unknown]
  - Conjunctival hyperaemia [Unknown]
  - Vitreous opacities [Unknown]
  - Retinal infiltrates [Unknown]
  - Eye swelling [Unknown]
  - Photophobia [Recovering/Resolving]
  - Retinal disorder [Recovering/Resolving]
